FAERS Safety Report 5131093-4 (Version None)
Quarter: 2006Q3

REPORT INFORMATION
  Report Type: 
  Country: None (occurrence: None)
  Receive Date: 20060825
  Receipt Date: 20060126
  Transmission Date: 20061208
  Serious: Yes (Other)
  Sender: FDA-Public Use
  Company Number: 2006013790

PATIENT
  Sex: Female

DRUGS (2)
  1. VFEND [Suspect]
     Indication: FUNGAL INFECTION
     Dosage: (2 IN 1 D)
     Dates: start: 20060123
  2. VINCRISTINE [Concomitant]

REACTIONS (1)
  - NEUTROPENIA [None]
